FAERS Safety Report 8105807-5 (Version None)
Quarter: 2012Q1

REPORT INFORMATION
  Report Type: 
  Country: None (occurrence: None)
  Receive Date: 20120201
  Receipt Date: 20120125
  Transmission Date: 20120608
  Serious: No
  Sender: FDA-Public Use
  Company Number: US-B.I. PHARMACEUTICALS,INC./RIDGEFIELD-2012-BP-01533BP

PATIENT
  Age: 7 Decade
  Sex: Female

DRUGS (1)
  1. PRADAXA [Suspect]
     Indication: ATRIAL FIBRILLATION

REACTIONS (2)
  - BREAST HAEMORRHAGE [None]
  - INTERNATIONAL NORMALISED RATIO INCREASED [None]
